FAERS Safety Report 6185879-8 (Version None)
Quarter: 2009Q2

REPORT INFORMATION
  Report Type: 
  Country: None (occurrence: None)
  Receive Date: 20090511
  Receipt Date: 20090429
  Transmission Date: 20091009
  Serious: Yes (Other)
  Sender: FDA-Public Use
  Company Number: B0573138A

PATIENT
  Sex: Female

DRUGS (2)
  1. CLENIL MODULITE [Suspect]
     Indication: DRUG USE FOR UNKNOWN INDICATION
     Dosage: 500MCG TWICE PER DAY
     Route: 055
  2. FLUOXETINE [Concomitant]

REACTIONS (4)
  - ANOREXIA [None]
  - COUGH [None]
  - NAUSEA [None]
  - WEIGHT DECREASED [None]
